FAERS Safety Report 16815169 (Version 2)
Quarter: 2019Q3

REPORT INFORMATION
  Report Type: Spontaneous
  Country: US (occurrence: US)
  Receive Date: 20190917
  Receipt Date: 20190925
  Transmission Date: 20191005
  Serious: No
  Sender: FDA-Public Use
  Company Number: US-ASTRAZENECA-2019SF27861

PATIENT
  Age: 24463 Day
  Sex: Female
  Weight: 104.3 kg

DRUGS (3)
  1. VITAMINS [Concomitant]
     Active Substance: VITAMINS
  2. BYDUREON [Suspect]
     Active Substance: EXENATIDE
     Indication: BLOOD GLUCOSE INCREASED
     Route: 058
     Dates: start: 20190829
  3. ATENOLOL. [Suspect]
     Active Substance: ATENOLOL
     Indication: HEART RATE ABNORMAL
     Route: 065

REACTIONS (7)
  - Product physical issue [Not Recovered/Not Resolved]
  - Injection site extravasation [Recovered/Resolved]
  - Arthritis [Not Recovered/Not Resolved]
  - Device issue [Unknown]
  - Overweight [Recovered/Resolved]
  - Blood glucose increased [Unknown]
  - Hypotension [Recovered/Resolved]

NARRATIVE: CASE EVENT DATE: 20190905
